FAERS Safety Report 21369209 (Version 1)
Quarter: 2022Q3

REPORT INFORMATION
  Report Type: Spontaneous
  Country: FR (occurrence: FR)
  Receive Date: 20220923
  Receipt Date: 20220923
  Transmission Date: 20221027
  Serious: Yes (Other)
  Sender: FDA-Public Use
  Company Number: FR-BAXTER-2018BAX023910

PATIENT
  Age: 38 Year
  Sex: Male

DRUGS (29)
  1. CYCLOPHOSPHAMIDE [Suspect]
     Active Substance: CYCLOPHOSPHAMIDE
     Indication: Central nervous system lymphoma
     Dosage: DEBULKING CHEMOTHERAPY, PM
     Route: 065
  2. CYCLOPHOSPHAMIDE [Suspect]
     Active Substance: CYCLOPHOSPHAMIDE
     Indication: Prophylaxis against transplant rejection
     Dosage: 2 CYCLES OF COPADEM INDUCTION (250 MG/M2 EVERY 12 HOURS)
     Route: 065
  3. CYCLOPHOSPHAMIDE [Suspect]
     Active Substance: CYCLOPHOSPHAMIDE
     Indication: Autologous haematopoietic stem cell transplant
     Dosage: CONDITIONING THERAPY FOR SECOND ASCT,ON DAY -3 AND -2, 60 MG/KG, PM
     Route: 065
  4. CYCLOPHOSPHAMIDE [Suspect]
     Active Substance: CYCLOPHOSPHAMIDE
     Dosage: PM
     Route: 065
  5. CYCLOPHOSPHAMIDE [Suspect]
     Active Substance: CYCLOPHOSPHAMIDE
     Dosage: 60 MG/KG, ON DAY -3 AND -2 : 4737.50 UG X 2 DOSES IN TOTAL
     Route: 065
  6. IFOSFAMIDE [Suspect]
     Active Substance: IFOSFAMIDE
     Indication: Central nervous system lymphoma
     Dosage: 3 CYCLES OF DIAM AT 1ST RELAPSE, 1500 MG/M2 CYCLICAL
     Route: 065
  7. IFOSFAMIDE [Suspect]
     Active Substance: IFOSFAMIDE
     Dosage: FROM 4 COURSES OF R-DIAM AT 2ND RELAPSE (FROM D1-D5), 1500 MG/M2, EVERY 3 WEEKS
     Route: 065
  8. THIOTEPA [Suspect]
     Active Substance: THIOTEPA
     Indication: Autologous haematopoietic stem cell transplant
     Dosage: 250 MG/M2, PM, CONDITIONING THERAPY FOR SECOND ASCT FROM DAY-9 TO -7; 487.50 MG X3 DOSES IN TOTAL
     Route: 065
  9. RITUXIMAB [Suspect]
     Active Substance: RITUXIMAB
     Indication: Central nervous system lymphoma
     Dosage: 375 MG/M2, EVERY 3 WEEKS, FROM 4 COURSES OF R-DIAM (IV AT D1)
     Route: 042
  10. METHOTREXATE [Suspect]
     Active Substance: METHOTREXATE
     Indication: Central nervous system lymphoma
     Dosage: 3000 MG/M2, EVERY 3 WEEKS, FROM 4 COURSES OF R-DIAM AT 2ND RELAPSE ON D3
     Route: 065
  11. METHOTREXATE [Suspect]
     Active Substance: METHOTREXATE
     Dosage: 3000 MG/M2, CYCLICAL, 2 CYCLES OF CYM CONSOLIDATION
     Route: 065
  12. METHOTREXATE [Suspect]
     Active Substance: METHOTREXATE
     Dosage: 3000 MG/M2, CYCLICAL, 3 CYCLES OF DIAM AT 1ST RELAPSE
     Route: 065
  13. METHOTREXATE [Suspect]
     Active Substance: METHOTREXATE
     Dosage: 15 MG, EVERY 3 WEEKS, FROM 4 COURSES OF R-DIAM AT 2ND RELAPSE
     Route: 037
  14. METHOTREXATE [Suspect]
     Active Substance: METHOTREXATE
     Dosage: 15 MG, CYCLICAL, 3 CYCLES OF DIAM AT 1ST RELAPSE
     Route: 037
  15. METHOTREXATE [Suspect]
     Active Substance: METHOTREXATE
     Dosage: 3000 MG/M2, CYCLICAL, 2 CYCLES OF COPADEM INDUCTION
     Route: 065
  16. DEXAMETHASONE [Suspect]
     Active Substance: DEXAMETHASONE
     Indication: Prophylaxis against transplant rejection
     Dosage: 40 MG, EVERY 3 WEEKS, FROM 4 COURSES OF R-DIAM AT 2ND RELAPSE(D1 TO D4)
     Route: 065
  17. DEXAMETHASONE [Suspect]
     Active Substance: DEXAMETHASONE
     Indication: Central nervous system lymphoma
     Dosage: 40 MG, CYCLICAL, 3 CYCLES OF DIAM AT 1ST RELAPSE
     Route: 065
  18. DEXAMETHASONE [Suspect]
     Active Substance: DEXAMETHASONE
     Dosage: CONDITIONED BY BEAM-ARAC HIGH DOSE BEFORE ASCT
     Route: 065
  19. CYTARABINE [Suspect]
     Active Substance: CYTARABINE
     Indication: Central nervous system lymphoma
     Dosage: 2 CYCLES OF COPADEM INDUCTION
     Route: 037
  20. CYTARABINE [Suspect]
     Active Substance: CYTARABINE
     Indication: Prophylaxis against transplant rejection
     Dosage: 100 MGM2, CYCLICAL, 2 CYCLES OF CYM CONSOLIDATION
     Route: 065
  21. CYTARABINE [Suspect]
     Active Substance: CYTARABINE
     Dosage: 2 CYCLES OF CYM CONSOLIDATION, PM
     Route: 037
  22. CYTARABINE [Suspect]
     Active Substance: CYTARABINE
     Dosage: 3000 MG/M2, QD, 3 CYCLES OF DIAM AT 1ST RELAPSE
     Route: 065
  23. CYTARABINE [Suspect]
     Active Substance: CYTARABINE
     Dosage: 1500 MG/M2, 3X MONTH, 4 COURSES OF R-DIAM 2ND RELAPSE (CYTARABIN 1500 MG/M2 X 2 /DAY ON D1-D2)
     Route: 065
  24. CYTARABINE [Suspect]
     Active Substance: CYTARABINE
     Dosage: 2000 MG/M2, PM, CONDITIONED BY BEAM-ARAC HIGH DOSE BEFORE ASCT, 2000 MG/M2 INFUSED OVER 1 HOUR, OVER
     Route: 042
  25. BUSULFAN [Suspect]
     Active Substance: BUSULFAN
     Indication: Autologous haematopoietic stem cell transplant
     Dosage: 0.8 MG/KG, QID (4/DAY) FROM DAY -6 TO -4 CONDITIONING THERAPY FOR SECOND ASCT
     Route: 042
  26. RACECADOTRIL [Suspect]
     Active Substance: RACECADOTRIL
     Indication: Product used for unknown indication
     Dosage: PM
     Route: 065
  27. CEFTAZIDIME [Suspect]
     Active Substance: CEFTAZIDIME
     Indication: Product used for unknown indication
     Dosage: PM
     Route: 065
  28. LENOGRASTIM [Concomitant]
     Active Substance: LENOGRASTIM
     Indication: Product used for unknown indication
     Dosage: 34 MUI/D, STARTING AT DAY 12 AFTER THE 2ND CYCLE OF R-DIAM, PM
     Route: 065
  29. FILGRASTIM [Concomitant]
     Active Substance: FILGRASTIM
     Indication: Product used for unknown indication
     Dosage: PRN
     Route: 065

REACTIONS (3)
  - Pseudomonal sepsis [Recovering/Resolving]
  - Enterobacter sepsis [Recovering/Resolving]
  - Mucosal inflammation [Recovering/Resolving]
